FAERS Safety Report 9460441 (Version 4)
Quarter: 2013Q4

REPORT INFORMATION
  Report Type: Spontaneous
  Country: CA (occurrence: CA)
  Receive Date: 20130815
  Receipt Date: 20131008
  Transmission Date: 20140711
  Serious: Yes (Other)
  Sender: FDA-Public Use
  Company Number: CA-VERTEX PHARMACEUTICALS INC-2013-008622

PATIENT
  Age: 59 Year
  Sex: Male
  Weight: 70 kg

DRUGS (6)
  1. INCIVEK [Suspect]
     Indication: HEPATITIS C
     Dosage: 750 MG, TID
     Route: 048
     Dates: start: 20130730, end: 20130808
  2. PEGASYS [Suspect]
     Indication: CHRONIC HEPATITIS C
     Dosage: 180 ?G, QW
     Route: 058
     Dates: start: 20130730, end: 2013
  3. PEGASYS [Suspect]
     Dosage: 135 ?G, UNK
     Route: 058
     Dates: start: 2013, end: 20131004
  4. RIBAVIRIN [Suspect]
     Indication: CHRONIC HEPATITIS C
     Dosage: 1000 MG, QD
     Route: 048
     Dates: start: 20130730, end: 2013
  5. RIBAVIRIN [Suspect]
     Dosage: 800 UNK, UNK
     Route: 048
     Dates: start: 2013, end: 20131004
  6. MULTIVITAMIN [Concomitant]
     Dosage: 1 DF, QD
     Route: 048

REACTIONS (17)
  - Neutrophil count decreased [Recovered/Resolved]
  - Rash maculo-papular [Recovered/Resolved]
  - Pruritus [Recovered/Resolved]
  - Neck pain [Not Recovered/Not Resolved]
  - Myalgia [Recovered/Resolved]
  - Abdominal pain upper [Recovered/Resolved]
  - Ecchymosis [Unknown]
  - Headache [Recovered/Resolved]
  - Aphthous stomatitis [Recovered/Resolved]
  - Eructation [Unknown]
  - Chest discomfort [Unknown]
  - Dyspnoea [Unknown]
  - Fatigue [Unknown]
  - Asthenia [Unknown]
  - Nausea [Not Recovered/Not Resolved]
  - Frequent bowel movements [Unknown]
  - Haemoglobin decreased [Recovered/Resolved]
